FAERS Safety Report 9568032 (Version 2)
Quarter: 2013Q3

REPORT INFORMATION
  Report Type: Spontaneous
  Country: US (occurrence: US)
  Receive Date: 20130930
  Receipt Date: 20130930
  Transmission Date: 20140515
  Serious: No
  Sender: FDA-Public Use
  Company Number: US-AMGEN-USASP2013014593

PATIENT
  Age: 61 Year
  Sex: Female

DRUGS (2)
  1. ENBREL [Suspect]
     Indication: PSORIATIC ARTHROPATHY
     Dosage: 50 MG, QWK
     Route: 065
     Dates: start: 20130212
  2. METHOTREXATE [Concomitant]
     Dosage: 8 TABLETS (2.5 MG EACH) ONCE A WEEK
     Route: 048
     Dates: start: 20121106

REACTIONS (7)
  - Local swelling [Not Recovered/Not Resolved]
  - Psoriatic arthropathy [Recovered/Resolved]
  - Arthralgia [Not Recovered/Not Resolved]
  - Swelling [Recovered/Resolved]
  - Pain in extremity [Not Recovered/Not Resolved]
  - Back pain [Not Recovered/Not Resolved]
  - Injection site pain [Not Recovered/Not Resolved]
